FAERS Safety Report 5242450-X (Version None)
Quarter: 2007Q1

REPORT INFORMATION
  Report Type: 
  Country: None (occurrence: None)
  Receive Date: 20070221
  Receipt Date: 20070211
  Transmission Date: 20070707
  Serious: Yes (Hospitalization)
  Sender: FDA-Public Use
  Company Number: CA-JNJFOC-20060203575

PATIENT
  Sex: Male

DRUGS (8)
  1. REMICADE [Suspect]
     Route: 042
  2. REMICADE [Suspect]
     Route: 042
  3. REMICADE [Suspect]
     Dosage: SEVENTH INFUSION
     Route: 042
  4. REMICADE [Suspect]
     Dosage: 6 INFUSIONS ON USNPECIFIED DATES
     Route: 042
  5. REMICADE [Suspect]
     Indication: DRUG USE FOR UNKNOWN INDICATION
     Dosage: WENT ON 1-YEAR HOLIDAY
     Route: 042
  6. BENADRYL [Concomitant]
     Indication: PREMEDICATION
     Route: 042
  7. ACETAMINOPHEN [Concomitant]
     Indication: PREMEDICATION
  8. METHOTREXATE [Concomitant]

REACTIONS (1)
  - TEMPORAL LOBE EPILEPSY [None]
